FAERS Safety Report 19358130 (Version 1)
Quarter: 2021Q2

REPORT INFORMATION
  Report Type: Spontaneous
  Country: CH (occurrence: CH)
  Receive Date: 20210601
  Receipt Date: 20210601
  Transmission Date: 20210717
  Serious: Yes (Other)
  Sender: FDA-Public Use
  Company Number: CH-ASTRAZENECA-2021A450139

PATIENT
  Sex: Female

DRUGS (3)
  1. CIPRALEX [Concomitant]
     Active Substance: ESCITALOPRAM OXALATE
     Dosage: UNKNOWN
     Route: 065
  2. SEQUASE XR [Suspect]
     Active Substance: QUETIAPINE FUMARATE
     Indication: OBSESSIVE-COMPULSIVE DISORDER
     Route: 048
     Dates: start: 201901
  3. SEQUASE XR [Suspect]
     Active Substance: QUETIAPINE FUMARATE
     Indication: SINUS NODE DYSFUNCTION
     Route: 048
     Dates: start: 201901

REACTIONS (1)
  - Electrocardiogram pacemaker spike [Unknown]
